FAERS Safety Report 4924103-8 (Version None)
Quarter: 2006Q1

REPORT INFORMATION
  Report Type: 
  Country: None (occurrence: None)
  Receive Date: 20060227
  Receipt Date: 20051114
  Transmission Date: 20060701
  Serious: No
  Sender: FDA-Public Use
  Company Number: US-GLAXOSMITHKLINE-A0582203A

PATIENT
  Age: 19 Year
  Sex: Male

DRUGS (5)
  1. WELLBUTRIN XL [Suspect]
     Indication: AUTISM
     Dosage: 300MG PER DAY
     Route: 048
     Dates: start: 20051005
  2. CLONIDINE [Concomitant]
  3. COGENTIN [Concomitant]
  4. VITAMIN E [Concomitant]
  5. TRAZODONE [Concomitant]

REACTIONS (1)
  - AGITATION [None]
